FAERS Safety Report 7798089-5 (Version None)
Quarter: 2011Q4

REPORT INFORMATION
  Report Type: 
  Country: None (occurrence: None)
  Receive Date: 20111005
  Receipt Date: 20110927
  Transmission Date: 20120403
  Serious: Yes (Other)
  Sender: FDA-Public Use
  Company Number: IE-JNJFOC-20110705294

PATIENT
  Sex: Female

DRUGS (3)
  1. REMICADE [Suspect]
     Indication: INFLAMMATORY BOWEL DISEASE
     Route: 042
     Dates: start: 20100618, end: 20110520
  2. REMICADE [Suspect]
     Indication: COLITIS ULCERATIVE
     Route: 042
     Dates: start: 20100618, end: 20110520
  3. MESALAMINE [Concomitant]
     Route: 065
     Dates: start: 20110112

REACTIONS (1)
  - LUPUS-LIKE SYNDROME [None]
